FAERS Safety Report 22061495 (Version 1)
Quarter: 2023Q1

REPORT INFORMATION
  Report Type: Report from Study
  Country: DE (occurrence: DE)
  Receive Date: 20230304
  Receipt Date: 20230304
  Transmission Date: 20230418
  Serious: Yes (Hospitalization, Other)
  Sender: FDA-Public Use
  Company Number: DE-ABBVIE-4132208

PATIENT
  Age: 37 Year
  Sex: Female
  Weight: 74 kg

DRUGS (5)
  1. HUMIRA [Suspect]
     Active Substance: ADALIMUMAB
     Indication: Psoriasis
     Route: 058
     Dates: start: 20170301
  2. HUMIRA [Suspect]
     Active Substance: ADALIMUMAB
     Indication: Psoriatic arthropathy
  3. SUCRALFATE [Concomitant]
     Active Substance: SUCRALFATE
     Indication: Gastrooesophageal reflux disease
     Dates: start: 201907
  4. PANTOZOL [Concomitant]
     Active Substance: PANTOPRAZOLE SODIUM
     Indication: Product used for unknown indication
     Dates: start: 201907
  5. VENLAFAXINE [Concomitant]
     Active Substance: VENLAFAXINE HYDROCHLORIDE
     Indication: Product used for unknown indication
     Dates: start: 201907

REACTIONS (10)
  - Gastrooesophageal reflux disease [Recovered/Resolved]
  - Gastric ulcer [Unknown]
  - Cholecystectomy [Recovered/Resolved]
  - Intervertebral disc operation [Recovered/Resolved]
  - Metabolic surgery [Unknown]
  - Gastric bypass [Recovered/Resolved]
  - Hiatus hernia [Recovered/Resolved]
  - Psoriatic arthropathy [Recovered/Resolved]
  - Post procedural sepsis [Recovered/Resolved]
  - Iron deficiency [Recovered/Resolved]

NARRATIVE: CASE EVENT DATE: 20180101
